FAERS Safety Report 20346577 (Version 1)
Quarter: 2022Q1

REPORT INFORMATION
  Report Type: Spontaneous
  Country: CA (occurrence: CA)
  Receive Date: 20220118
  Receipt Date: 20220118
  Transmission Date: 20220423
  Serious: Yes (Hospitalization)
  Sender: FDA-Public Use
  Company Number: CA-CELGENE-CAN-20220103332

PATIENT
  Age: 73 Year
  Sex: Male

DRUGS (2)
  1. REVLIMID [Suspect]
     Active Substance: LENALIDOMIDE
     Indication: Plasma cell myeloma
     Route: 048
  2. VAXZEVRIA [Suspect]
     Active Substance: AZD-1222
     Indication: Product used for unknown indication
     Dosage: 10 DOSES
     Route: 030

REACTIONS (16)
  - Skin hypertrophy [Unknown]
  - Feeling hot [Unknown]
  - Abdominal distension [Unknown]
  - Abdominal pain upper [Unknown]
  - Constipation [Unknown]
  - Decreased appetite [Unknown]
  - Diarrhoea [Unknown]
  - Dry skin [Unknown]
  - Epistaxis [Unknown]
  - Headache [Unknown]
  - Hypoaesthesia [Unknown]
  - Influenza [Unknown]
  - Insomnia [Unknown]
  - Malaise [Unknown]
  - Pyrexia [Unknown]
  - Product dose omission issue [Unknown]
